FAERS Safety Report 7473988-2 (Version None)
Quarter: 2011Q2

REPORT INFORMATION
  Report Type: 
  Country: None (occurrence: None)
  Receive Date: 20110511
  Receipt Date: 20110420
  Transmission Date: 20111010
  Serious: Yes (Hospitalization, Other)
  Sender: FDA-Public Use
  Company Number: US-BAYER-200940293NA

PATIENT
  Age: 58 Year
  Sex: Female
  Weight: 58.957 kg

DRUGS (10)
  1. ASPIRIN [Concomitant]
     Dosage: 81 MG, QD
  2. LOPRESSOR [Concomitant]
     Dosage: 100 MG, BID
  3. ELAVIL [Concomitant]
     Dosage: 25 MG, QD
     Route: 048
  4. TYLENOL W/ CODEINE NO. 3 [Concomitant]
  5. TRASYLOL [Suspect]
     Indication: MITRAL VALVE REPAIR
     Dosage: UNK
     Route: 042
     Dates: start: 20060525
  6. MOTRIN [Concomitant]
     Dosage: 800 MG, TID
     Route: 048
  7. PROTAMINE SULFATE [Concomitant]
     Dosage: UNK
     Dates: start: 20060525
  8. PRILOSEC [Concomitant]
     Dosage: 20 UNK, UNK
     Route: 048
  9. MELPHALAN HYDROCHLORIDE [Concomitant]
     Dosage: 5 MG, QD
     Route: 048
  10. TRASYLOL [Suspect]
     Indication: CARDIAC OPERATION

REACTIONS (12)
  - ANXIETY [None]
  - EMOTIONAL DISTRESS [None]
  - RENAL FAILURE [None]
  - RENAL INJURY [None]
  - ANHEDONIA [None]
  - RENAL IMPAIRMENT [None]
  - INJURY [None]
  - STRESS [None]
  - FEAR [None]
  - UNEVALUABLE EVENT [None]
  - PAIN [None]
  - PSYCHIATRIC SYMPTOM [None]
